FAERS Safety Report 15364135 (Version 1)
Quarter: 2018Q3

REPORT INFORMATION
  Report Type: Spontaneous
  Country: US (occurrence: US)
  Receive Date: 20180909
  Receipt Date: 20180909
  Transmission Date: 20181010
  Serious: No
  Sender: FDA-Public Use
  Company Number: US-ASTRAZENECA-2018SF09676

PATIENT
  Sex: Female

DRUGS (1)
  1. NEXIUM [Suspect]
     Active Substance: ESOMEPRAZOLE MAGNESIUM
     Route: 048

REACTIONS (8)
  - Feeling abnormal [Unknown]
  - Blister [Unknown]
  - Vomiting [Unknown]
  - Dyspepsia [Unknown]
  - Adverse reaction [Unknown]
  - Throat irritation [Unknown]
  - Drug dose omission [Unknown]
  - Diarrhoea [Unknown]
